FAERS Safety Report 22969333 (Version 6)
Quarter: 2023Q4

REPORT INFORMATION
  Report Type: Spontaneous
  Country: LV (occurrence: LV)
  Receive Date: 20230922
  Receipt Date: 20231227
  Transmission Date: 20240110
  Serious: Yes (Death, Hospitalization, Other)
  Sender: FDA-Public Use
  Company Number: LV-009507513-2309LVA005838

PATIENT
  Age: 31 Year
  Sex: Female

DRUGS (3)
  1. PEMBROLIZUMAB [Suspect]
     Active Substance: PEMBROLIZUMAB
     Indication: Triple negative breast cancer
     Dosage: 200 MILLIGRAM
     Dates: start: 20230703, end: 20230703
  2. PEMBROLIZUMAB [Suspect]
     Active Substance: PEMBROLIZUMAB
     Dosage: 200 MILLIGRAM
     Dates: start: 20230731, end: 20230731
  3. CAPECITABINE [Suspect]
     Active Substance: CAPECITABINE
     Indication: Triple negative breast cancer
     Dosage: UNK
     Dates: start: 2023, end: 20230730

REACTIONS (38)
  - Brain oedema [Fatal]
  - Pulmonary oedema [Fatal]
  - Malignant neoplasm progression [Fatal]
  - General physical health deterioration [Unknown]
  - Renal ischaemia [Unknown]
  - Pancytopenia [Unknown]
  - Back pain [Unknown]
  - Radiotherapy [Unknown]
  - Pyrexia [Unknown]
  - Thrombocytopenia [Unknown]
  - Enterocolitis haemorrhagic [Unknown]
  - Autoimmune colitis [Unknown]
  - Disseminated intravascular coagulation [Unknown]
  - Focal peritonitis [Unknown]
  - Gastritis erosive [Unknown]
  - Multiple organ dysfunction syndrome [Unknown]
  - Colitis erosive [Unknown]
  - Intestinal ulcer perforation [Unknown]
  - Constipation [Unknown]
  - C-reactive protein increased [Unknown]
  - Diarrhoea [Unknown]
  - Dehydration [Unknown]
  - Aspartate aminotransferase increased [Unknown]
  - Blood alkaline phosphatase increased [Unknown]
  - Blood lactate dehydrogenase increased [Unknown]
  - Blood creatinine decreased [Unknown]
  - Carbohydrate antigen 15-3 increased [Unknown]
  - Blood bilirubin unconjugated increased [Unknown]
  - Alanine aminotransferase increased [Unknown]
  - Blood glucose increased [Unknown]
  - Carbohydrate antigen 125 increased [Unknown]
  - Functional gastrointestinal disorder [Unknown]
  - Hypermetabolism [Unknown]
  - Hypertension [Unknown]
  - Hepatic steatosis [Unknown]
  - Arteriosclerosis [Unknown]
  - Therapy partial responder [Unknown]
  - Inappropriate schedule of product administration [Unknown]

NARRATIVE: CASE EVENT DATE: 20230101
